FAERS Safety Report 26101907 (Version 1)
Quarter: 2025Q4

REPORT INFORMATION
  Report Type: Report from Study
  Country: US (occurrence: US)
  Receive Date: 20251128
  Receipt Date: 20251128
  Transmission Date: 20260118
  Serious: Yes (Other)
  Sender: ALEXION PHARMACEUTICALS
  Company Number: US-AstraZeneca-CH-00999560A

PATIENT
  Sex: Female

DRUGS (2)
  1. CAPIVASERTIB [Suspect]
     Active Substance: CAPIVASERTIB
     Indication: Neoplasm malignant
     Dosage: 400 MILLIGRAM, BID
     Dates: start: 20251013
  2. CAPIVASERTIB [Suspect]
     Active Substance: CAPIVASERTIB
     Indication: Breast neoplasm

REACTIONS (7)
  - Rash [Unknown]
  - Diarrhoea [Unknown]
  - Tumour compression [Unknown]
  - Blood glucose increased [Unknown]
  - Increased appetite [Unknown]
  - Emotional disorder [Unknown]
  - Cancer pain [Unknown]
